FAERS Safety Report 19465526 (Version 1)
Quarter: 2021Q2

REPORT INFORMATION
  Report Type: Spontaneous
  Country: CN (occurrence: CN)
  Receive Date: 20210624
  Receipt Date: 20210624
  Transmission Date: 20210717
  Serious: Yes (Hospitalization, Other)
  Sender: FDA-Public Use
  Company Number: CN-OTSUKA-2021_021211

PATIENT
  Age: 2 Year
  Sex: Male
  Weight: 12.6 kg

DRUGS (5)
  1. MELPHALAN HYDROCHLORIDE. [Suspect]
     Active Substance: MELPHALAN HYDROCHLORIDE
     Indication: PROPHYLAXIS
     Dosage: 79.8 MG, QD
     Route: 042
     Dates: start: 20210531, end: 20210531
  2. LEVETIRACETAM. [Suspect]
     Active Substance: LEVETIRACETAM
     Indication: EPILEPSY
     Dosage: 125 MG, BID
     Route: 048
     Dates: start: 20210525, end: 20210531
  3. URSODEOXYCHOLIC ACID [Suspect]
     Active Substance: URSODIOL
     Indication: HEPATIC VEIN OCCLUSION
     Dosage: 100 MG, BID
     Route: 048
     Dates: start: 20210525, end: 20210616
  4. ONDANSETRON HYDROCHLORIDE. [Suspect]
     Active Substance: ONDANSETRON HYDROCHLORIDE
     Indication: VOMITING
     Dosage: 3 MG, TID
     Route: 042
     Dates: start: 20210525, end: 20210607
  5. BUSULFAN. [Suspect]
     Active Substance: BUSULFAN
     Indication: CHEMOTHERAPY SIDE EFFECT PROPHYLAXIS
     Dosage: 15.1 MG, QID
     Route: 042
     Dates: start: 20210525, end: 20210529

REACTIONS (5)
  - Pancytopenia [Recovering/Resolving]
  - Vomiting [Recovering/Resolving]
  - Diarrhoea [Recovering/Resolving]
  - Pyrexia [Recovering/Resolving]
  - Product use in unapproved indication [Unknown]

NARRATIVE: CASE EVENT DATE: 20210525
